FAERS Safety Report 4712206-2 (Version None)
Quarter: 2005Q3

REPORT INFORMATION
  Report Type: 
  Country: None (occurrence: None)
  Receive Date: 20050712
  Receipt Date: 20050310
  Transmission Date: 20060218
  Serious: Yes (Death)
  Sender: FDA-Public Use
  Company Number: PHNU2005DE01334

PATIENT
  Age: 8 Year
  Sex: Male
  Weight: 29 kg

DRUGS (7)
  1. ISONIAZID [Suspect]
  2. VORICONAZOLE [Suspect]
  3. SANDIMMUNE [Suspect]
     Indication: BONE MARROW TRANSPLANT
     Dosage: 220 MG/DAY
     Route: 042
     Dates: start: 20050201
  4. BUSULFAN [Suspect]
  5. CYCLOPHOSPHAMIDE [Suspect]
  6. MELPHALAN [Suspect]
  7. ATGAM [Suspect]

REACTIONS (3)
  - DRUG LEVEL INCREASED [None]
  - LYMPHOPROLIFERATIVE DISORDER [None]
  - MULTI-ORGAN FAILURE [None]
